FAERS Safety Report 8307698-6 (Version None)
Quarter: 2012Q2

REPORT INFORMATION
  Report Type: 
  Country: None (occurrence: None)
  Receive Date: 20120424
  Receipt Date: 20120414
  Transmission Date: 20120825
  Serious: Yes (Hospitalization)
  Sender: FDA-Public Use
  Company Number: FR-EISAI INC-E7389-02299-CLI-FR

PATIENT
  Sex: Male
  Weight: 62 kg

DRUGS (6)
  1. EPIRUBICIN HYDROCHLORIDE [Suspect]
     Indication: NON-SMALL CELL LUNG CANCER
     Dosage: UNKNOWN
     Route: 041
  2. POTASSIUM CHLORIDE [Concomitant]
     Route: 048
  3. GLICOZIDE [Suspect]
     Route: 048
  4. METFORMIN HCL [Suspect]
     Route: 048
  5. FERROUS SULFATE TAB [Suspect]
     Route: 048
  6. DURAGESIC-100 [Suspect]
     Route: 062

REACTIONS (1)
  - BONE LESION [None]
